FAERS Safety Report 21906644 (Version 1)
Quarter: 2023Q1

REPORT INFORMATION
  Report Type: Spontaneous
  Country: GB (occurrence: GB)
  Receive Date: 20230125
  Receipt Date: 20230125
  Transmission Date: 20230418
  Serious: Yes (Hospitalization, Other)
  Sender: FDA-Public Use
  Company Number: GB-002147023-NVSC2022GB303124

PATIENT
  Age: 2 Year
  Sex: Female

DRUGS (5)
  1. ONDANSETRON [Suspect]
     Active Substance: ONDANSETRON
     Indication: Prophylaxis
     Dosage: UNK
     Route: 048
     Dates: start: 20210517, end: 20221221
  2. CRIZOTINIB [Suspect]
     Active Substance: CRIZOTINIB
     Indication: Product used for unknown indication
     Dosage: 87.5 MILLIGRAM
     Route: 065
     Dates: start: 20221108
  3. SODIUM PHOSPHATE, MONOBASIC [Suspect]
     Active Substance: SODIUM PHOSPHATE, MONOBASIC
     Indication: Supplementation therapy
     Dosage: UNK
     Route: 048
     Dates: start: 20221205
  4. TEMSIROLIMUS [Suspect]
     Active Substance: TEMSIROLIMUS
     Indication: Product used for unknown indication
     Dosage: 23 MILLIGRAM
     Route: 065
     Dates: start: 20221108, end: 20221212
  5. COTRIMOXAZOLE [Concomitant]
     Active Substance: SULFAMETHOXAZOLE\TRIMETHOPRIM
     Indication: Prophylaxis
     Dosage: UNK
     Route: 048
     Dates: start: 20210517

REACTIONS (7)
  - Diarrhoea [Unknown]
  - Dehydration [Unknown]
  - Gastroenteritis [Not Recovered/Not Resolved]
  - Metapneumovirus infection [Unknown]
  - Neoplasm malignant [Unknown]
  - Pyrexia [Unknown]
  - Vomiting [Unknown]

NARRATIVE: CASE EVENT DATE: 20221220
